FAERS Safety Report 7882944-1 (Version None)
Quarter: 2011Q4

REPORT INFORMATION
  Report Type: 
  Country: None (occurrence: None)
  Receive Date: 20111101
  Receipt Date: 20110622
  Transmission Date: 20120403
  Serious: No
  Sender: FDA-Public Use
  Company Number: US-AMGEN-USASP2011032164

PATIENT
  Age: 66 Year
  Sex: Female

DRUGS (1)
  1. ENBREL [Suspect]
     Indication: RHEUMATOID ARTHRITIS
     Dosage: 50 MG, QWK
     Dates: start: 20110515

REACTIONS (12)
  - ASTHENIA [None]
  - CONTUSION [None]
  - DECREASED APPETITE [None]
  - HEADACHE [None]
  - DIZZINESS [None]
  - GINGIVAL SWELLING [None]
  - MUSCLE SPASMS [None]
  - FATIGUE [None]
  - JOINT SWELLING [None]
  - ARTHRALGIA [None]
  - GINGIVAL PAIN [None]
  - JOINT STIFFNESS [None]
